FAERS Safety Report 5584690-6 (Version None)
Quarter: 2008Q1

REPORT INFORMATION
  Report Type: 
  Country: None (occurrence: None)
  Receive Date: 20080108
  Receipt Date: 20071231
  Transmission Date: 20080703
  Serious: Yes (Other)
  Sender: FDA-Public Use
  Company Number: US-PFIZER INC-2008000391

PATIENT
  Sex: Female
  Weight: 81.6 kg

DRUGS (1)
  1. LIPITOR [Suspect]
     Indication: BLOOD CHOLESTEROL INCREASED
     Route: 048
     Dates: start: 20020101, end: 20071201

REACTIONS (4)
  - KIDNEY SMALL [None]
  - MYALGIA [None]
  - RENAL FAILURE [None]
  - RENAL IMPAIRMENT [None]
